FAERS Safety Report 15881479 (Version 1)
Quarter: 2019Q1

REPORT INFORMATION
  Report Type: Spontaneous
  Country: IT (occurrence: IT)
  Receive Date: 20190128
  Receipt Date: 20190128
  Transmission Date: 20190417
  Serious: Yes (Other)
  Sender: FDA-Public Use
  Company Number: PHHY2019IT019340

PATIENT
  Age: 92 Year
  Sex: Male

DRUGS (1)
  1. RAMIPRIL+HYDROCHLOROTHIAZIDE [Suspect]
     Active Substance: HYDROCHLOROTHIAZIDE\RAMIPRIL
     Indication: HYPERTENSION
     Dosage: 25 MG, QD
     Route: 048
     Dates: start: 20160104, end: 20190116

REACTIONS (1)
  - Neoplasm malignant [Recovering/Resolving]

NARRATIVE: CASE EVENT DATE: 20190116
